FAERS Safety Report 11077984 (Version 1)
Quarter: 2015Q2

REPORT INFORMATION
  Report Type: Spontaneous
  Country: US (occurrence: None)
  Receive Date: 20150429
  Receipt Date: 20150429
  Transmission Date: 20150821
  Serious: No
  Sender: FDA-Public Use
  Company Number: None

PATIENT
  Age: 50 Year
  Sex: Female

DRUGS (1)
  1. ENBREL [Suspect]
     Active Substance: ETANERCEPT
     Indication: RHEUMATOID ARTHRITIS
     Route: 058
     Dates: start: 20141007, end: 20150428

REACTIONS (3)
  - C-reactive protein increased [None]
  - Sinusitis [None]
  - Pharyngitis streptococcal [None]

NARRATIVE: CASE EVENT DATE: 20150428
